FAERS Safety Report 12712155 (Version 1)
Quarter: 2016Q3

REPORT INFORMATION
  Report Type: Spontaneous
  Country: US (occurrence: US)
  Receive Date: 20160902
  Receipt Date: 20160902
  Transmission Date: 20161109
  Serious: No
  Sender: FDA-Public Use
  Company Number: US-PFIZER INC-2016389697

PATIENT
  Age: 85 Year
  Sex: Female

DRUGS (1)
  1. NITROSTAT [Suspect]
     Active Substance: NITROGLYCERIN
     Indication: CHEST PAIN
     Dosage: 0.4 MG, AS NEEDED (EVERY 1 HOUR AS NEEDED, X3 DOSES)
     Route: 060

REACTIONS (1)
  - Off label use [Unknown]
